FAERS Safety Report 10048180 (Version 5)
Quarter: 2014Q3

REPORT INFORMATION
  Report Type: Report from Study
  Country: US (occurrence: US)
  Receive Date: 20140331
  Receipt Date: 20140820
  Transmission Date: 20150326
  Serious: Yes (Hospitalization, Disabling, Other)
  Sender: FDA-Public Use
  Company Number: US-ACTELION-A-US2014-96496

PATIENT
  Age: 79 Year
  Sex: Female

DRUGS (1)
  1. TRACLEER [Suspect]
     Active Substance: BOSENTAN\BOSENTAN MONOHYDRATE
     Indication: PULMONARY ARTERIAL HYPERTENSION
     Dosage: UNK
     Route: 048

REACTIONS (12)
  - Heart valve replacement [Unknown]
  - Cardiac valve disease [Not Recovered/Not Resolved]
  - Stent placement [Unknown]
  - Pyrexia [Unknown]
  - Urinary tract infection [Unknown]
  - Pericardial effusion [Not Recovered/Not Resolved]
  - Pulmonary oedema [Not Recovered/Not Resolved]
  - Dyspnoea [Unknown]
  - Sepsis [Not Recovered/Not Resolved]
  - Atrial septal defect repair [Not Recovered/Not Resolved]
  - Cardiac disorder [Unknown]
  - Oedema [Unknown]

NARRATIVE: CASE EVENT DATE: 20140416
